FAERS Safety Report 8950280 (Version 1)
Quarter: 2012Q4

REPORT INFORMATION
  Report Type: Report from Study
  Country: KR (occurrence: KR)
  Receive Date: 20121205
  Receipt Date: 20121205
  Transmission Date: 20130627
  Serious: Yes (Hospitalization)
  Sender: FDA-Public Use
  Company Number: KR-BAXTER-2012BAX025388

PATIENT
  Age: 29 Year
  Sex: Female
  Weight: 56 kg

DRUGS (15)
  1. PHYSIONEAL [Suspect]
     Indication: END STAGE RENAL DISEASE (ESRD)
     Route: 033
     Dates: start: 20120920
  2. PHYSIONEAL [Suspect]
     Route: 033
     Dates: start: 20120920
  3. EXTRANEAL [Suspect]
     Indication: END STAGE RENAL DISEASE (ESRD)
     Route: 033
     Dates: start: 20120919
  4. EXTRANEAL [Suspect]
     Route: 033
     Dates: start: 20120919
  5. DIOVAN [Concomitant]
     Indication: HYPERTENSION
     Route: 048
     Dates: start: 20120816
  6. NORVASC [Concomitant]
     Indication: HYPERTENSION
     Route: 048
     Dates: start: 20120816
  7. NEBILET [Concomitant]
     Indication: HYPERTENSION
     Route: 048
     Dates: start: 20120821
  8. CRESTOR [Concomitant]
     Indication: HYPERCHOLESTEROLEMIA
     Route: 048
     Dates: start: 20120816
  9. CALCIUM CARBONATE [Concomitant]
     Indication: END STAGE RENAL DISEASE (ESRD)
     Route: 048
     Dates: start: 20120819
  10. FEROBA [Concomitant]
     Indication: END STAGE RENAL DISEASE (ESRD)
     Route: 048
     Dates: start: 20120816
  11. ZOLPIDEM [Concomitant]
     Indication: INSOMNIA
     Route: 048
     Dates: start: 20120821
  12. LACTULOSE [Concomitant]
     Indication: END STAGE RENAL DISEASE (ESRD)
     Route: 048
     Dates: start: 20120821
  13. INSULIN GLARGINE [Concomitant]
     Indication: DIABETES MELLITUS
     Route: 058
     Dates: start: 20120831
  14. INSULIN GLULISINE [Concomitant]
     Indication: DIABETES MELLITUS
     Route: 058
     Dates: start: 20120817
  15. LEVOTHYROXIN [Concomitant]
     Indication: HYPOTHYROIDISM
     Route: 048
     Dates: start: 20120817

REACTIONS (7)
  - Removal of ambulatory peritoneal catheter [Recovered/Resolved]
  - Catheter site haemorrhage [Recovered/Resolved]
  - Dizziness [None]
  - Dyspnoea [None]
  - Chest discomfort [None]
  - Chills [None]
  - Catheter removal [None]
